FAERS Safety Report 5869597-9 (Version None)
Quarter: 2008Q3

REPORT INFORMATION
  Report Type: 
  Country: None (occurrence: None)
  Receive Date: 20080904
  Receipt Date: 20080102
  Transmission Date: 20090109
  Serious: No
  Sender: FDA-Public Use
  Company Number: US-KINGPHARMUSA00001-K200800003

PATIENT

DRUGS (3)
  1. CYTOMEL [Suspect]
     Indication: TRI-IODOTHYRONINE DECREASED
     Dosage: 12.5 MCG DAILY
     Route: 048
     Dates: start: 20071222
  2. ENBREL [Concomitant]
     Indication: PSORIATIC ARTHROPATHY
     Dates: start: 20050101
  3. OTHER VITAMIN PRODUCTS, COMBINATIONS [Concomitant]
     Indication: SUPPLEMENTATION THERAPY

REACTIONS (2)
  - PRURITUS [None]
  - RASH [None]
